FAERS Safety Report 13402353 (Version 1)
Quarter: 2017Q2

REPORT INFORMATION
  Report Type: Spontaneous
  Country: ES (occurrence: ES)
  Receive Date: 20170404
  Receipt Date: 20170404
  Transmission Date: 20170830
  Serious: Yes (Hospitalization, Other)
  Sender: FDA-Public Use
  Company Number: ES-PFIZER INC-2017124950

PATIENT
  Age: 46 Year

DRUGS (6)
  1. METHOTREXATE SODIUM. [Suspect]
     Active Substance: METHOTREXATE SODIUM
     Indication: ULCERATIVE KERATITIS
     Dosage: 20 MG, WEEKLY
     Route: 058
  2. INFLIXIMAB HOSPIRA [Suspect]
     Active Substance: INFLIXIMAB
     Dosage: 5 MG/KG, CYCLIC (BETWEEN THE 3RD AND 4TH CYCLE OF THE SECOND ROUND OF INFLIXIMAB)
     Route: 041
  3. INFLIXIMAB HOSPIRA [Suspect]
     Active Substance: INFLIXIMAB
     Dosage: 5 MG/KG, CYCLIC (5TH CYCLE OF INFLIXIMAB)
     Route: 041
  4. PREDNISONE. [Concomitant]
     Active Substance: PREDNISONE
     Dosage: 2.5 MG, DAILY
     Route: 048
  5. INFLIXIMAB HOSPIRA [Suspect]
     Active Substance: INFLIXIMAB
     Indication: ULCERATIVE KERATITIS
     Dosage: 5 MG/KG, CYCLIC (3 CYCLES)
     Route: 041
  6. PREDNISONE. [Concomitant]
     Active Substance: PREDNISONE
     Dosage: 10 MG, DAILY
     Route: 048

REACTIONS (2)
  - Paraesthesia [Recovering/Resolving]
  - Tuberculosis [Recovering/Resolving]
